FAERS Safety Report 19097311 (Version 2)
Quarter: 2021Q2

REPORT INFORMATION
  Report Type: Spontaneous
  Country: AU (occurrence: AU)
  Receive Date: 20210406
  Receipt Date: 20210601
  Transmission Date: 20210717
  Serious: Yes (Death)
  Sender: FDA-Public Use
  Company Number: AU-SERVIER-S21002847

PATIENT

DRUGS (1)
  1. ONCASPAR [Suspect]
     Active Substance: PEGASPARGASE
     Indication: ACUTE LYMPHOCYTIC LEUKAEMIA
     Dosage: UNK, ON DAY +8 AND +22
     Route: 065

REACTIONS (3)
  - Hepatic steatosis [Fatal]
  - Pancreatitis necrotising [Fatal]
  - Sepsis [Fatal]

NARRATIVE: CASE EVENT DATE: 2021
